FAERS Safety Report 22296756 (Version 1)
Quarter: 2023Q2

REPORT INFORMATION
  Report Type: Spontaneous
  Country: US (occurrence: US)
  Receive Date: 20230509
  Receipt Date: 20230509
  Transmission Date: 20230721
  Serious: No
  Sender: FDA-Public Use
  Company Number: US-GSKCCFUS-Case-01694277_AE-95616

PATIENT
  Age: 69 Year
  Sex: Female

DRUGS (2)
  1. ZEJULA [Suspect]
     Active Substance: NIRAPARIB
     Indication: Ovarian cancer
     Dosage: 200 MG
     Dates: end: 20230207
  2. ZEJULA [Suspect]
     Active Substance: NIRAPARIB
     Indication: Breast cancer
     Dosage: 100 MG
     Dates: start: 20230216

REACTIONS (5)
  - White blood cell count decreased [Unknown]
  - Insomnia [Unknown]
  - Platelet count decreased [Unknown]
  - Haemoglobin decreased [Unknown]
  - Red cell distribution width abnormal [Unknown]
